FAERS Safety Report 7524904-6 (Version None)
Quarter: 2011Q2

REPORT INFORMATION
  Report Type: 
  Country: None (occurrence: None)
  Receive Date: 20110602
  Receipt Date: 20110602
  Transmission Date: 20111010
  Serious: Yes (Life-Threatening)
  Sender: FDA-Public Use
  Company Number: None

PATIENT
  Age: 35 Year
  Sex: Male
  Weight: 81.6475 kg

DRUGS (1)
  1. HUMIRA [Suspect]
     Indication: JOINT ANKYLOSIS
     Dosage: BI-WEEKLY CUTANEOUS
     Route: 003
     Dates: start: 20101014, end: 20110214

REACTIONS (5)
  - DYSPNOEA [None]
  - CHEST PAIN [None]
  - ARTHRALGIA [None]
  - CEREBROVASCULAR ACCIDENT [None]
  - PALPITATIONS [None]
